FAERS Safety Report 24259178 (Version 1)
Quarter: 2024Q3

REPORT INFORMATION
  Report Type: Spontaneous
  Country: US (occurrence: US)
  Receive Date: 20240828
  Receipt Date: 20240828
  Transmission Date: 20241017
  Serious: Yes (Life-Threatening, Hospitalization)
  Sender: JOHNSON AND JOHNSON
  Company Number: US-JNJFOC-20240855419

PATIENT
  Age: 27 Year
  Sex: Female

DRUGS (2)
  1. LOPERAMIDE HYDROCHLORIDE [Suspect]
     Active Substance: LOPERAMIDE HYDROCHLORIDE
     Indication: Product used for unknown indication
     Route: 065
  2. HEROIN [Suspect]
     Active Substance: DIAMORPHINE
     Indication: Product used for unknown indication
     Route: 065

REACTIONS (7)
  - Mental status changes [Unknown]
  - Pneumonia [Unknown]
  - Haemoglobin decreased [Unknown]
  - Arrhythmia [Recovered/Resolved]
  - Respiratory distress [Unknown]
  - Torsade de pointes [Recovered/Resolved]
  - Overdose [Unknown]
